FAERS Safety Report 6092156-2 (Version None)
Quarter: 2009Q1

REPORT INFORMATION
  Report Type: 
  Country: None (occurrence: None)
  Receive Date: 20090225
  Receipt Date: 20090218
  Transmission Date: 20090719
  Serious: Yes (Other)
  Sender: FDA-Public Use
  Company Number: CA-AVENTIS-200911654GDDC

PATIENT
  Sex: Female

DRUGS (1)
  1. LANTUS [Suspect]
     Route: 058
     Dates: start: 20080818

REACTIONS (1)
  - WEIGHT INCREASED [None]
